FAERS Safety Report 14364681 (Version 3)
Quarter: 2018Q1

REPORT INFORMATION
  Report Type: Spontaneous
  Country: US (occurrence: US)
  Receive Date: 20180108
  Receipt Date: 20180209
  Transmission Date: 20180509
  Serious: No
  Sender: FDA-Public Use
  Company Number: US-GLAXOSMITHKLINE-US2018001461

PATIENT
  Age: 58 Year
  Sex: Male
  Weight: 104.31 kg

DRUGS (1)
  1. TANZEUM [Suspect]
     Active Substance: ALBIGLUTIDE
     Indication: DIABETES MELLITUS
     Dosage: 50 MG, WE
     Route: 058
     Dates: start: 201705

REACTIONS (5)
  - Product quality issue [Unknown]
  - Treatment noncompliance [Unknown]
  - Sinus disorder [Unknown]
  - Drug dose omission [Unknown]
  - Multiple allergies [Unknown]

NARRATIVE: CASE EVENT DATE: 201712
